FAERS Safety Report 5743710-6 (Version None)
Quarter: 2008Q2

REPORT INFORMATION
  Report Type: 
  Country: None (occurrence: None)
  Receive Date: 20080520
  Receipt Date: 20080509
  Transmission Date: 20081010
  Serious: Yes (Death)
  Sender: FDA-Public Use
  Company Number: FI-ROCHE-553791

PATIENT
  Sex: Female
  Weight: 93.5 kg

DRUGS (13)
  1. BONIVA [Suspect]
     Indication: OSTEOPOROSIS POSTMENOPAUSAL
     Route: 048
     Dates: start: 20070404
  2. TREXAN (FINLAND) [Suspect]
     Indication: DRUG USE FOR UNKNOWN INDICATION
     Route: 065
     Dates: start: 20071017, end: 20080128
  3. TREXAN (FINLAND) [Suspect]
     Route: 065
     Dates: start: 20080129, end: 20080222
  4. CALCICHEW D3 FORTE [Suspect]
     Indication: OSTEOPOROSIS POSTMENOPAUSAL
     Dosage: DOSE: CA:1 GRAM, D3:800 KY, FREQUENCY:1 X 2.
     Route: 048
     Dates: start: 20070404
  5. CALCICHEW D3 FORTE [Suspect]
     Dosage: DOSE: CA:1 GRAM, D3:800 KY, FREQUENCY:1 X 2.
     Route: 048
     Dates: start: 20070404
  6. ATENOLOL [Concomitant]
     Dates: start: 19750101
  7. AMITRID [Concomitant]
     Dates: start: 20061201
  8. AMITRID [Concomitant]
     Dates: start: 20061201
  9. DUREKAL [Concomitant]
     Dates: start: 20061201
  10. PREDNISOLON [Concomitant]
     Dates: start: 20061201
  11. PREDNISOLON [Concomitant]
     Dates: start: 20070921
  12. PREDNISOLON [Concomitant]
     Dates: start: 20071016
  13. ACID FOLIC [Concomitant]
     Dates: start: 20071018

REACTIONS (1)
  - NEUTROPENIC SEPSIS [None]
